FAERS Safety Report 4358321-7 (Version None)
Quarter: 2004Q2

REPORT INFORMATION
  Report Type: 
  Country: None (occurrence: None)
  Receive Date: 20040512
  Receipt Date: 20040512
  Transmission Date: 20050107
  Serious: Yes (Death, Life-Threatening, Hospitalization)
  Sender: FDA-Public Use
  Company Number: None

PATIENT
  Age: 80 Year
  Sex: Female
  Weight: 58.9676 kg

DRUGS (2)
  1. INTRON A [Suspect]
     Indication: RENAL CELL CARCINOMA STAGE UNSPECIFIED
     Dosage: 6 DOSES 3 MILLION IV 3 MILLION IV.2ML
     Route: 042
     Dates: start: 20031002, end: 20031003
  2. PEN FOR SUBCUTANEOUS [Concomitant]

REACTIONS (6)
  - ANOREXIA [None]
  - CARDIO-RESPIRATORY ARREST [None]
  - DIZZINESS [None]
  - FALL [None]
  - NEOPLASM RECURRENCE [None]
  - WEIGHT DECREASED [None]
